FAERS Safety Report 14092121 (Version 3)
Quarter: 2020Q2

REPORT INFORMATION
  Report Type: Report from Study
  Country: FR (occurrence: FR)
  Receive Date: 20171016
  Receipt Date: 20200513
  Transmission Date: 20200713
  Serious: Yes (Death, Life-Threatening)
  Sender: FDA-Public Use
  Company Number: FR-ROCHE-2006995

PATIENT
  Age: 69 Year
  Sex: Female

DRUGS (7)
  1. CARBOPLATIN. [Suspect]
     Active Substance: CARBOPLATIN
     Indication: OVARIAN CANCER
     Dosage: LAST DOSE PRIOR TO THE EVENT: 01/SEP/2017
     Route: 042
     Dates: start: 20170721, end: 20170915
  2. ATEZOLIZUMAB. [Suspect]
     Active Substance: ATEZOLIZUMAB
     Indication: OVARIAN CANCER
     Dosage: LAST DOSE PRIOR TO THE EVENT: 01/SEP/2017
     Route: 042
     Dates: start: 20170721, end: 20170915
  3. INNOHEP [Concomitant]
     Active Substance: TINZAPARIN SODIUM
  4. ESOMEPRAZOLE. [Concomitant]
     Active Substance: ESOMEPRAZOLE MAGNESIUM
  5. METEOSPASMYL (ALVERINE CITRATE\DIMETHICONE) [Concomitant]
     Active Substance: ALVERINE CITRATE\DIMETHICONE
  6. BEVACIZUMAB. [Suspect]
     Active Substance: BEVACIZUMAB
     Indication: OVARIAN CANCER
     Dosage: LAST DOSE PRIOR TO THE EVENT: 01/SEP/2017
     Route: 042
     Dates: start: 20170721, end: 20170915
  7. PEGYLATED LIPOSOMAL DOXORUBICIN [Suspect]
     Active Substance: DOXORUBICIN
     Indication: OVARIAN CANCER
     Dosage: LAST DOSE PRIOR TO THE EVENT: 18/AUG/2017
     Route: 042
     Dates: start: 20170721, end: 20170915

REACTIONS (2)
  - Myocarditis [Unknown]
  - Myelodysplastic syndrome [Fatal]

NARRATIVE: CASE EVENT DATE: 20170915
